FAERS Safety Report 9522273 (Version 4)
Quarter: 2013Q4

REPORT INFORMATION
  Report Type: Spontaneous
  Country: GB (occurrence: GB)
  Receive Date: 20130913
  Receipt Date: 20131104
  Transmission Date: 20140711
  Serious: Yes (Hospitalization, Other)
  Sender: FDA-Public Use
  Company Number: PHFR2013GB004512

PATIENT
  Age: 42 Year
  Sex: Female
  Weight: 72 kg

DRUGS (10)
  1. CLOZARIL [Suspect]
     Indication: SCHIZOPHRENIA
     Dosage: UNK
     Route: 048
     Dates: start: 20130701
  2. CLOZARIL [Suspect]
     Indication: SCHIZOPHRENIA, PARANOID TYPE
     Dosage: 25 MANE+125 NOCTE
     Route: 048
     Dates: end: 20130703
  3. CLOZARIL [Suspect]
     Dosage: 200 MG, QD
     Dates: start: 20130715, end: 20130717
  4. RISPERIDONE [Concomitant]
     Indication: PSYCHOTIC DISORDER
     Dosage: 2 MG
     Route: 048
  5. RISPERIDONE [Concomitant]
     Indication: SCHIZOPHRENIA, PARANOID TYPE
     Dosage: 4 MG, BID
     Route: 048
     Dates: start: 201102
  6. LAMOTRIGINE [Concomitant]
     Indication: AFFECTIVE DISORDER
     Dosage: 200 MG
     Route: 048
     Dates: start: 201211
  7. LAMOTRIGINE [Concomitant]
     Indication: SCHIZOPHRENIA, PARANOID TYPE
  8. DULOXETINE [Concomitant]
     Indication: DEPRESSION
     Dosage: 60 MG
     Route: 048
     Dates: start: 201106
  9. DULOXETINE [Concomitant]
     Indication: SCHIZOPHRENIA, PARANOID TYPE
  10. ZOPICLONE [Concomitant]
     Indication: SCHIZOPHRENIA, PARANOID TYPE
     Dosage: 7.5 MG, UNK
     Route: 048
     Dates: start: 201102

REACTIONS (21)
  - Cardiomegaly [Unknown]
  - Cardiorenal syndrome [Unknown]
  - Computerised tomogram thorax abnormal [Unknown]
  - Cardiac failure [Unknown]
  - Ventricular dysfunction [Unknown]
  - Dyspnoea [Recovered/Resolved]
  - Malaise [Recovered/Resolved]
  - Sepsis [Recovered/Resolved]
  - Chest pain [Recovered/Resolved]
  - Lower respiratory tract infection [Unknown]
  - C-reactive protein increased [Unknown]
  - Inflammatory marker increased [Unknown]
  - Pyrexia [Recovered/Resolved]
  - White blood cell count increased [Unknown]
  - Neutrophil count increased [Unknown]
  - Pneumonia [Recovered/Resolved]
  - Hyperhidrosis [Recovered/Resolved]
  - Tachycardia [Unknown]
  - Myocarditis [Unknown]
  - Lymphocyte count decreased [Unknown]
  - Haematocrit decreased [Unknown]
